FAERS Safety Report 11750729 (Version 6)
Quarter: 2016Q2

REPORT INFORMATION
  Report Type: Report from Study
  Country: CA (occurrence: CA)
  Receive Date: 20151118
  Receipt Date: 20160607
  Transmission Date: 20160815
  Serious: Yes (Hospitalization, Other)
  Sender: FDA-Public Use
  Company Number: CA-GILEAD-2015-0182439

PATIENT
  Age: 73 Year
  Sex: Male

DRUGS (4)
  1. IDELALISIB [Suspect]
     Active Substance: IDELALISIB
     Indication: B-CELL LYMPHOMA
     Dosage: 150 MG, BID
     Route: 048
     Dates: start: 20150511
  2. LAMIVUDINE. [Concomitant]
     Active Substance: LAMIVUDINE
  3. BENADRYL [Concomitant]
     Active Substance: DIPHENHYDRAMINE HYDROCHLORIDE
  4. ALLOPURINOL. [Concomitant]
     Active Substance: ALLOPURINOL

REACTIONS (15)
  - Cholecystitis [Unknown]
  - Pleural effusion [Unknown]
  - Pneumothorax [Unknown]
  - Bile duct obstruction [Unknown]
  - Pneumonia [Unknown]
  - Drug dose omission [Unknown]
  - Peripheral swelling [Unknown]
  - Dyspnoea [Unknown]
  - Gallbladder pain [Unknown]
  - Cough [Not Recovered/Not Resolved]
  - Cough [Unknown]
  - Chest pain [Unknown]
  - Abdominal pain [Unknown]
  - Nasopharyngitis [Not Recovered/Not Resolved]
  - Dyspnoea [Unknown]

NARRATIVE: CASE EVENT DATE: 201510
